FAERS Safety Report 5060173-7 (Version None)
Quarter: 2006Q3

REPORT INFORMATION
  Report Type: 
  Country: None (occurrence: None)
  Receive Date: 20060724
  Receipt Date: 20060504
  Transmission Date: 20061208
  Serious: Yes (Hospitalization)
  Sender: FDA-Public Use
  Company Number: PHNU2006DE01854

PATIENT
  Sex: Male

DRUGS (3)
  1. TEGRETOL [Suspect]
     Route: 048
  2. TEGRETOL [Suspect]
  3. PERENTEROL [Suspect]
     Dosage: UNK, UNK
     Route: 065

REACTIONS (9)
  - DERMATITIS ALLERGIC [None]
  - FATIGUE [None]
  - PRURITUS [None]
  - RASH [None]
  - RASH PUSTULAR [None]
  - SKIN HAEMORRHAGE [None]
  - TESTICULAR NEOPLASM [None]
  - TESTICULAR OPERATION [None]
  - TESTICULAR PAIN [None]
